FAERS Safety Report 16811370 (Version 1)
Quarter: 2019Q3

REPORT INFORMATION
  Report Type: Report from Study
  Country: US (occurrence: US)
  Receive Date: 20190916
  Receipt Date: 20190916
  Transmission Date: 20191005
  Serious: Yes (Hospitalization)
  Sender: FDA-Public Use
  Company Number: US-ACTELION-A-NJ2017-164728

PATIENT
  Sex: Female
  Weight: 83.45 kg

DRUGS (4)
  1. SILDENAFIL CITRATE. [Concomitant]
     Active Substance: SILDENAFIL CITRATE
  2. UPTRAVI [Suspect]
     Active Substance: SELEXIPAG
     Indication: PULMONARY ARTERIAL HYPERTENSION
     Dosage: 400 MCG, BID
     Route: 048
  3. LETAIRIS [Concomitant]
     Active Substance: AMBRISENTAN
  4. REMODULIN [Suspect]
     Active Substance: TREPROSTINIL
     Indication: PULMONARY ARTERIAL HYPERTENSION
     Route: 065

REACTIONS (20)
  - Myalgia [Unknown]
  - Exercise tolerance decreased [Unknown]
  - Fatigue [Unknown]
  - Hypotension [Unknown]
  - Therapy change [Unknown]
  - Incontinence [Unknown]
  - Musculoskeletal pain [Unknown]
  - Headache [Not Recovered/Not Resolved]
  - Migraine [Unknown]
  - Dizziness [Unknown]
  - Presyncope [Unknown]
  - Pain in extremity [Not Recovered/Not Resolved]
  - Dyspnoea exertional [Unknown]
  - Feeling abnormal [Unknown]
  - Epistaxis [Unknown]
  - Chest pain [Unknown]
  - Palpitations [Unknown]
  - Cough [Unknown]
  - Diarrhoea [Not Recovered/Not Resolved]
  - Disease progression [Unknown]
